FAERS Safety Report 6749959-8 (Version None)
Quarter: 2010Q2

REPORT INFORMATION
  Report Type: 
  Country: None (occurrence: None)
  Receive Date: 20100601
  Receipt Date: 20100519
  Transmission Date: 20101027
  Serious: Yes (Death)
  Sender: FDA-Public Use
  Company Number: US-BRACCO-BDI-010612

PATIENT
  Sex: Male

DRUGS (5)
  1. OXYGEN [Concomitant]
     Route: 045
  2. MULTIHANCE [Suspect]
     Indication: DIZZINESS
     Route: 013
     Dates: start: 20071006, end: 20071006
  3. MULTIHANCE [Suspect]
     Indication: NUCLEAR MAGNETIC RESONANCE IMAGING
     Route: 013
     Dates: start: 20071006, end: 20071006
  4. OXYBUTYNIN [Concomitant]
  5. ASPIRIN [Concomitant]

REACTIONS (4)
  - CARDIAC ARREST [None]
  - CARDIO-RESPIRATORY ARREST [None]
  - MYOCARDIAL INFARCTION [None]
  - PARAESTHESIA [None]
